FAERS Safety Report 7597824-9 (Version None)
Quarter: 2011Q3

REPORT INFORMATION
  Report Type: 
  Country: None (occurrence: None)
  Receive Date: 20110708
  Receipt Date: 20110628
  Transmission Date: 20111222
  Serious: Yes (Death, Hospitalization)
  Sender: FDA-Public Use
  Company Number: IT-GLAXOSMITHKLINE-B0721807A

PATIENT
  Sex: Male
  Weight: 63 kg

DRUGS (2)
  1. OFATUMUMAB [Suspect]
     Indication: CHRONIC LYMPHOCYTIC LEUKAEMIA
     Dosage: 2300MG CUMULATIVE DOSE
     Route: 042
     Dates: start: 20110309
  2. BENDAMUSTINE [Suspect]
     Indication: CHRONIC LYMPHOCYTIC LEUKAEMIA
     Dosage: 460MG CUMULATIVE DOSE
     Route: 042
     Dates: start: 20110307

REACTIONS (3)
  - FEBRILE NEUTROPENIA [None]
  - HAEMORRHAGE [None]
  - HYPOGLYCAEMIA [None]
